FAERS Safety Report 5808597-1 (Version None)
Quarter: 2008Q3

REPORT INFORMATION
  Report Type: 
  Country: None (occurrence: None)
  Receive Date: 20080714
  Receipt Date: 20080707
  Transmission Date: 20090109
  Serious: Yes (Hospitalization)
  Sender: FDA-Public Use
  Company Number: US-AMGEN-QUU292886

PATIENT
  Sex: Female

DRUGS (6)
  1. ARANESP [Suspect]
     Indication: RENAL FAILURE CHRONIC
  2. NEXIUM [Concomitant]
  3. CELLCEPT [Concomitant]
  4. PROGRAF [Concomitant]
  5. UNKNOWN [Concomitant]
  6. UNKNOWN [Concomitant]

REACTIONS (4)
  - ANAEMIA [None]
  - CARDIAC MURMUR [None]
  - PERICARDIAL EFFUSION [None]
  - PLEURAL EFFUSION [None]
